FAERS Safety Report 20800831 (Version 3)
Quarter: 2022Q2

REPORT INFORMATION
  Report Type: Spontaneous
  Country: SA (occurrence: SA)
  Receive Date: 20220509
  Receipt Date: 20220526
  Transmission Date: 20220721
  Serious: Yes (Other)
  Sender: FDA-Public Use
  Company Number: SA-MLMSERVICE-20220420-3510707-1

PATIENT
  Age: 35 Year
  Sex: Female

DRUGS (1)
  1. CELECOXIB [Suspect]
     Active Substance: CELECOXIB
     Indication: Sacroiliitis
     Dosage: 200 MG, QD (TABLET)
     Route: 048
     Dates: start: 201904

REACTIONS (3)
  - Blindness unilateral [Recovered/Resolved]
  - Blindness transient [Recovered/Resolved]
  - Vision blurred [Recovered/Resolved]

NARRATIVE: CASE EVENT DATE: 20190101
